FAERS Safety Report 9171684 (Version 1)
Quarter: 2013Q1

REPORT INFORMATION
  Report Type: Spontaneous
  Country: TR (occurrence: None)
  Receive Date: 20130301
  Receipt Date: 20130301
  Transmission Date: 20140127
  Serious: Yes (Other)
  Sender: FDA-Public Use
  Company Number: AETUR201300071

PATIENT
  Age: 71 Year
  Sex: Female
  Weight: 80 kg

DRUGS (3)
  1. FLEBOGAMMA %5 5 G/100ML (HUMAN NORMAL IMMUNOGLOBULIN) (5 PCT) [Suspect]
     Indication: IDIOPATHIC THROMBOCYTOPENIC PURPURA
     Route: 042
     Dates: start: 20130213, end: 20130213
  2. METHYLPREDNISOLONE [Concomitant]
  3. AZATHIOPRINE [Concomitant]

REACTIONS (2)
  - Anaphylactic reaction [None]
  - Respiratory arrest [None]
